FAERS Safety Report 10177805 (Version 1)
Quarter: 2014Q2

REPORT INFORMATION
  Report Type: Spontaneous
  Country: US (occurrence: US)
  Receive Date: 20140516
  Receipt Date: 20140516
  Transmission Date: 20141212
  Serious: No
  Sender: FDA-Public Use
  Company Number: US-SA-2013SA098192

PATIENT
  Age: 80 Year
  Sex: Female

DRUGS (5)
  1. APIDRA SOLOSTAR [Suspect]
     Route: 058
  2. SOLOSTAR [Concomitant]
  3. LANTUS SOLOSTAR [Suspect]
     Dosage: START DATE - A FEW MONTHS AGO DOSE:14 UNIT(S)
     Route: 058
  4. SOLOSTAR [Concomitant]
  5. LANTUS [Suspect]
     Route: 051

REACTIONS (4)
  - Feeling abnormal [Unknown]
  - Depressed mood [Unknown]
  - Blood glucose increased [Unknown]
  - Wrong drug administered [Unknown]
